FAERS Safety Report 7989433 (Version 2)
Quarter: 2013Q4

REPORT INFORMATION
  Report Type: Spontaneous
  Country: US (occurrence: None)
  Receive Date: 20110524
  Receipt Date: 20131008
  Transmission Date: 20140711
  Serious: Yes (Hospitalization, Other)
  Sender: FDA-Public Use
  Company Number: CIP11000551

PATIENT
  Age: 70 Year
  Sex: Female
  Weight: 56.7 kg

DRUGS (17)
  1. ACTONEL [Suspect]
     Indication: OSTEOPOROSIS
     Dosage: 35 MG ONCE WEEKLY, ORAL
     Route: 048
     Dates: start: 20051115, end: 20060209
  2. FOSAMAX [Suspect]
     Indication: OSTEOPOROSIS
     Dosage: 70 MG ONCE WEEKLY, ORAL
     Route: 048
     Dates: start: 20040626, end: 20051014
  3. BONIVA [Suspect]
     Indication: OSTEOPOROSIS
     Dosage: 150 MG ONCE MONTHLY, ORAL
     Route: 048
     Dates: start: 20070116
  4. LOVASTATIN [Concomitant]
  5. BENICAR [Concomitant]
  6. ALBUTEROL [Concomitant]
  7. PREVACID [Concomitant]
  8. FLUOXETINE [Concomitant]
  9. BENCIAR (OLMESARTAN MEDOXOMIL) [Concomitant]
  10. LEVOTHYROXINE SODIUM [Concomitant]
  11. LISINOPRIL (LISINOPRIL) [Concomitant]
  12. DETROL LA [Concomitant]
  13. DICYCLOMINE /00068601/(DICYCLOVERINE) [Concomitant]
  14. VITAMIN C /00008001/(ASCORBIC ACID) [Concomitant]
  15. VITAMIN E /00110501/(TOCOPHEROL) [Concomitant]
  16. CALCIUM (CALCIUM) [Concomitant]
  17. VITAMIN D /00318501/(COLECALCIFEROL) [Concomitant]

REACTIONS (24)
  - Osteomyelitis [None]
  - Pain in jaw [None]
  - Gingival pain [None]
  - Gingivitis [None]
  - Oedema mouth [None]
  - Dysphagia [None]
  - Jaw fracture [None]
  - Swelling face [None]
  - Impaired healing [None]
  - Fracture nonunion [None]
  - Fall [None]
  - Femur fracture [None]
  - Pain in extremity [None]
  - Hyponatraemia [None]
  - Cardiac failure congestive [None]
  - Decubitus ulcer [None]
  - Weight bearing difficulty [None]
  - Oedema peripheral [None]
  - Ecchymosis [None]
  - Cellulitis [None]
  - Wound necrosis [None]
  - Sciatica [None]
  - Neuritis [None]
  - Oral candidiasis [None]
